FAERS Safety Report 6252841-6 (Version None)
Quarter: 2009Q2

REPORT INFORMATION
  Report Type: 
  Country: None (occurrence: None)
  Receive Date: 20090629
  Receipt Date: 20090629
  Transmission Date: 20091009
  Serious: No
  Sender: FDA-Public Use
  Company Number: None

PATIENT
  Age: 64 Year
  Sex: Male
  Weight: 83.9154 kg

DRUGS (1)
  1. ABILIFY [Suspect]
     Indication: BIPOLAR DISORDER
     Dosage: 5 MG. TWICE A DAY PO
     Route: 048
     Dates: start: 20070601, end: 20090101

REACTIONS (4)
  - DRY MOUTH [None]
  - GLOSSODYNIA [None]
  - TARDIVE DYSKINESIA [None]
  - TREMOR [None]
